FAERS Safety Report 8997613 (Version 2)
Quarter: 2013Q2

REPORT INFORMATION
  Report Type: Spontaneous
  Country: US (occurrence: US)
  Receive Date: 20130104
  Receipt Date: 20130425
  Transmission Date: 20140414
  Serious: No
  Sender: FDA-Public Use
  Company Number: US-009507513-1301USA000710

PATIENT
  Age: 18 Year
  Sex: Female
  Weight: 97.51 kg

DRUGS (1)
  1. IMPLANON [Suspect]
     Indication: CONTRACEPTION
     Dosage: 1 DF, UNK
     Route: 023
     Dates: start: 20110403, end: 20121211

REACTIONS (5)
  - Metrorrhagia [Recovered/Resolved]
  - Headache [Recovered/Resolved]
  - Pain in extremity [Recovered/Resolved]
  - Device breakage [Unknown]
  - Device dislocation [Unknown]
